FAERS Safety Report 5573017-1 (Version None)
Quarter: 2007Q4

REPORT INFORMATION
  Report Type: 
  Country: None (occurrence: None)
  Receive Date: 20071224
  Receipt Date: 20071213
  Transmission Date: 20080405
  Serious: Yes (Hospitalization, Other)
  Sender: FDA-Public Use
  Company Number: FR-JNJFOC-20071203480

PATIENT
  Sex: Male

DRUGS (2)
  1. TAVANIC [Suspect]
     Indication: ACUTE SINUSITIS
     Route: 065
  2. PREDNISOLONE [Concomitant]
     Indication: ACUTE SINUSITIS
     Route: 065

REACTIONS (1)
  - ACUTE PULMONARY OEDEMA [None]
